FAERS Safety Report 14031505 (Version 1)
Quarter: 2017Q4

REPORT INFORMATION
  Report Type: Spontaneous
  Country: DE (occurrence: DE)
  Receive Date: 20171002
  Receipt Date: 20171002
  Transmission Date: 20180321
  Serious: Yes (Other)
  Sender: FDA-Public Use
  Company Number: DE-TEVA-809037GER

PATIENT
  Age: 16 Year
  Sex: Male
  Weight: 44 kg

DRUGS (1)
  1. FLUOXETIN [Suspect]
     Active Substance: FLUOXETINE HYDROCHLORIDE
     Indication: DEPRESSION
     Dosage: 40 MILLIGRAM DAILY;
     Route: 048

REACTIONS (1)
  - Antidepressant drug level increased [Not Recovered/Not Resolved]

NARRATIVE: CASE EVENT DATE: 20170822
